FAERS Safety Report 24259169 (Version 1)
Quarter: 2024Q3

REPORT INFORMATION
  Report Type: Spontaneous
  Country: US (occurrence: None)
  Receive Date: 20240828
  Receipt Date: 20240828
  Transmission Date: 20241017
  Serious: Yes (Death, Hospitalization)
  Sender: Public
  Company Number: None

PATIENT
  Sex: Female
  Weight: 19.5 kg

DRUGS (8)
  1. CARBOPLATIN [Suspect]
     Active Substance: CARBOPLATIN
  2. CYCLOPHOSPHAMIDE [Concomitant]
     Active Substance: CYCLOPHOSPHAMIDE
  3. DEXRAZOXANE (ZINECARD) [Concomitant]
  4. DOXORUBICIN HYDROCHLORIDE [Concomitant]
  5. ETOPOSIDE [Concomitant]
     Active Substance: ETOPOSIDE
  6. CAMPTOSAR [Concomitant]
     Active Substance: IRINOTECAN HYDROCHLORIDE
  7. MESNA [Concomitant]
     Active Substance: MESNA
  8. VINCRISTINE SULFATE [Concomitant]

REACTIONS (18)
  - Nephroblastoma [None]
  - Intracranial mass [None]
  - Brain oedema [None]
  - Brain herniation [None]
  - Disease progression [None]
  - Tumour inflammation [None]
  - Intracranial pressure increased [None]
  - Brain injury [None]
  - Unresponsive to stimuli [None]
  - Areflexia [None]
  - Tonic clonic movements [None]
  - Anisocoria [None]
  - Decorticate posture [None]
  - Moaning [None]
  - Phonophobia [None]
  - Insurance issue [None]
  - Headache [None]
  - Nausea [None]

NARRATIVE: CASE EVENT DATE: 20240816
